FAERS Safety Report 22178643 (Version 2)
Quarter: 2023Q2

REPORT INFORMATION
  Report Type: Spontaneous
  Country: FR (occurrence: FR)
  Receive Date: 20230405
  Receipt Date: 20230417
  Transmission Date: 20230722
  Serious: Yes (Death, Hospitalization, Other)
  Sender: FDA-Public Use
  Company Number: None

PATIENT
  Age: 62 Year
  Sex: Male
  Weight: 68 kg

DRUGS (9)
  1. ELIQUIS [Suspect]
     Active Substance: APIXABAN
     Indication: Thrombosis prophylaxis
     Dosage: 5 MGX2
     Route: 048
     Dates: start: 202209, end: 20221227
  2. INLYTA [Suspect]
     Active Substance: AXITINIB
     Indication: Renal cancer
     Dosage: 5 MG
     Route: 048
     Dates: start: 20221118, end: 20221125
  3. INLYTA [Suspect]
     Active Substance: AXITINIB
     Dosage: 7 MG
     Route: 048
     Dates: start: 20221126, end: 20221203
  4. INLYTA [Suspect]
     Active Substance: AXITINIB
     Dosage: 10 MG
     Dates: start: 20221204, end: 20221227
  5. PRIMPERAN [Concomitant]
     Active Substance: METOCLOPRAMIDE HYDROCHLORIDE
     Indication: Product used for unknown indication
  6. MIRTAZAPINE [Concomitant]
     Active Substance: MIRTAZAPINE
     Indication: Product used for unknown indication
  7. KETODERM [KETOCONAZOLE] [Concomitant]
     Indication: Product used for unknown indication
  8. LEVOTHYROXINE [Concomitant]
     Active Substance: LEVOTHYROXINE
     Indication: Product used for unknown indication
  9. OXYCODONE HYDROCHLORIDE [Concomitant]
     Active Substance: OXYCODONE HYDROCHLORIDE
     Indication: Product used for unknown indication

REACTIONS (4)
  - Haemoptysis [Not Recovered/Not Resolved]
  - Decreased appetite [Not Recovered/Not Resolved]
  - Acute respiratory distress syndrome [Fatal]
  - Abdominal pain [Recovering/Resolving]

NARRATIVE: CASE EVENT DATE: 20221129
